FAERS Safety Report 6345612-3 (Version None)
Quarter: 2009Q3

REPORT INFORMATION
  Report Type: 
  Country: None (occurrence: None)
  Receive Date: 20090909
  Receipt Date: 20090831
  Transmission Date: 20100115
  Serious: No
  Sender: FDA-Public Use
  Company Number: BR-ROCHE-654228

PATIENT
  Sex: Female
  Weight: 70 kg

DRUGS (2)
  1. ROACUTAN [Suspect]
     Indication: ACNE
     Route: 048
     Dates: start: 20081001, end: 20090401
  2. YASMIN [Concomitant]
     Indication: CONTRACEPTION
     Route: 048
     Dates: end: 20090401

REACTIONS (2)
  - NO ADVERSE EVENT [None]
  - PREGNANCY [None]
